FAERS Safety Report 7488124-6 (Version None)
Quarter: 2011Q2

REPORT INFORMATION
  Report Type: 
  Country: None (occurrence: None)
  Receive Date: 20110518
  Receipt Date: 20110512
  Transmission Date: 20111010
  Serious: Yes (Other)
  Sender: FDA-Public Use
  Company Number: EG-ROCHE-748650

PATIENT
  Sex: Male
  Weight: 105 kg

DRUGS (2)
  1. PEGINTERFERON ALFA-2A [Suspect]
     Indication: HEPATITIS C
     Route: 058
     Dates: start: 20081129, end: 20091028
  2. RIBAVIRIN [Suspect]
     Indication: HEPATITIS C
     Dosage: DOSE 1200MG DAILY
     Route: 048
     Dates: start: 20081129, end: 20091028

REACTIONS (1)
  - NEPHROLITHIASIS [None]
